FAERS Safety Report 6325854-3 (Version None)
Quarter: 2009Q3

REPORT INFORMATION
  Report Type: 
  Country: None (occurrence: None)
  Receive Date: 20090824
  Receipt Date: 20090814
  Transmission Date: 20100115
  Serious: Yes (Other)
  Sender: FDA-Public Use
  Company Number: US-ABBOTT-09P-163-0591437-00

PATIENT
  Sex: Male

DRUGS (7)
  1. NIASPAN [Suspect]
     Indication: HIGH DENSITY LIPOPROTEIN DECREASED
     Dates: start: 20070101, end: 20090801
  2. NIASPAN [Suspect]
     Indication: LOW DENSITY LIPOPROTEIN INCREASED
     Dates: start: 20090814
  3. GENERIC DIGOXIN (NON-ABBOTT) [Suspect]
     Indication: PALPITATIONS
  4. POTASSIUM SUPPLEMENT [Concomitant]
     Indication: MINERAL SUPPLEMENTATION
  5. MULTI-VITAMIN [Concomitant]
     Indication: VITAMIN SUPPLEMENTATION
  6. ASPIRIN [Concomitant]
     Indication: DRUG USE FOR UNKNOWN INDICATION
  7. TOPROL-XL [Concomitant]
     Indication: PALPITATIONS

REACTIONS (3)
  - FLUSHING [None]
  - GALLBLADDER DISORDER [None]
  - PRURITUS [None]
